FAERS Safety Report 5219865-9 (Version None)
Quarter: 2007Q1

REPORT INFORMATION
  Report Type: 
  Country: None (occurrence: None)
  Receive Date: 20070125
  Receipt Date: 20070113
  Transmission Date: 20070707
  Serious: Yes (Other)
  Sender: FDA-Public Use
  Company Number: US-PFIZER INC-2007004624

PATIENT
  Sex: Female
  Weight: 64.4 kg

DRUGS (9)
  1. CHANTIX [Suspect]
     Indication: EX-SMOKER
     Dates: start: 20061202, end: 20070112
  2. LORAZEPAM [Suspect]
     Indication: SLEEP DISORDER
     Dates: start: 20070101, end: 20070101
  3. PREDNISONE TAB [Suspect]
     Indication: RASH
  4. PREDNISONE TAB [Suspect]
     Indication: PRURITUS
  5. CYCLOBENZAPRINE HCL [Suspect]
     Indication: SLEEP DISORDER
     Dates: start: 20070101, end: 20070113
  6. EFFEXOR XR [Concomitant]
  7. LIPITOR [Concomitant]
  8. AMBIEN [Concomitant]
  9. PROTONIX [Concomitant]

REACTIONS (6)
  - ADVERSE DRUG REACTION [None]
  - DRUG INEFFECTIVE [None]
  - LIVER DISORDER [None]
  - PRURITUS [None]
  - RASH [None]
  - URTICARIA [None]
